FAERS Safety Report 4617122-2 (Version None)
Quarter: 2005Q1

REPORT INFORMATION
  Report Type: 
  Country: None (occurrence: None)
  Receive Date: 20050323
  Receipt Date: 20050317
  Transmission Date: 20050727
  Serious: Yes (Hospitalization)
  Sender: FDA-Public Use
  Company Number: US-ROCHE-399055

PATIENT
  Age: 84 Year
  Sex: Female
  Weight: 85.3 kg

DRUGS (2)
  1. XENICAL [Suspect]
     Indication: OBESITY
     Route: 048
     Dates: start: 20040815, end: 20041215
  2. UNSPECIFIED MEDICATIONS [Concomitant]
     Dates: end: 20041215

REACTIONS (1)
  - CORONARY ARTERY OCCLUSION [None]
